FAERS Safety Report 4910030-9 (Version None)
Quarter: 2006Q1

REPORT INFORMATION
  Report Type: 
  Country: None (occurrence: None)
  Receive Date: 20060208
  Receipt Date: 20060125
  Transmission Date: 20060701
  Serious: Yes (Other)
  Sender: FDA-Public Use
  Company Number: 200610049BYL

PATIENT
  Age: 70 Year
  Sex: Female

DRUGS (7)
  1. AVELOX [Suspect]
     Indication: BRONCHITIS ACUTE
     Dosage: 400 MG, QD, ORAL
     Route: 048
     Dates: start: 20060104, end: 20060109
  2. AMLODIN [Concomitant]
  3. ACINON [Concomitant]
  4. MARZULENE S [Concomitant]
  5. STOMILASE [Concomitant]
  6. HUSCODE [Concomitant]
  7. BROCIN [Concomitant]

REACTIONS (1)
  - DUODENAL ULCER [None]
